FAERS Safety Report 4505402-0 (Version None)
Quarter: 2004Q4

REPORT INFORMATION
  Report Type: 
  Country: None (occurrence: None)
  Receive Date: 20041116
  Receipt Date: 20041101
  Transmission Date: 20050328
  Serious: Yes (Hospitalization)
  Sender: FDA-Public Use
  Company Number: 2004GB02598

PATIENT
  Age: 75 Year
  Sex: Female

DRUGS (6)
  1. ATENOLOL [Suspect]
     Indication: MYOCARDIAL ISCHAEMIA
     Dosage: 100 MG QD PO
     Route: 048
     Dates: end: 20041013
  2. AMLODIPINE [Concomitant]
  3. LISINOPRIL [Concomitant]
  4. TOLBUTAMIDE [Concomitant]
  5. ATORVASTATIN CALCIUM [Concomitant]
  6. METFORMIN HCL [Concomitant]

REACTIONS (4)
  - CONDITION AGGRAVATED [None]
  - LEFT VENTRICULAR FAILURE [None]
  - MYOCARDIAL ISCHAEMIA [None]
  - PULMONARY OEDEMA [None]
